FAERS Safety Report 6929854-1 (Version None)
Quarter: 2010Q3

REPORT INFORMATION
  Report Type: 
  Country: None (occurrence: None)
  Receive Date: 20100813
  Receipt Date: 20100731
  Transmission Date: 20110219
  Serious: Yes (Other)
  Sender: FDA-Public Use
  Company Number: 2010AP001602

PATIENT
  Age: 56 Year
  Sex: Male

DRUGS (2)
  1. AMLODIPINE BESYLATE [Suspect]
     Indication: HYPERTENSION
     Dosage: 10 MG;QD
  2. LISINOPRIL [Concomitant]

REACTIONS (4)
  - ADRENAL DISORDER [None]
  - HYPOKALAEMIA [None]
  - NODULE [None]
  - PRIMARY HYPERALDOSTERONISM [None]
